FAERS Safety Report 5809642-X (Version None)
Quarter: 2008Q3

REPORT INFORMATION
  Report Type: 
  Country: None (occurrence: None)
  Receive Date: 20080711
  Receipt Date: 20080711
  Transmission Date: 20090109
  Serious: Yes (Death)
  Sender: FDA-Public Use
  Company Number: None

PATIENT
  Age: 54 Year
  Sex: Male
  Weight: 71.6683 kg

DRUGS (18)
  1. GEMCITABINE [Suspect]
     Indication: PANCREATIC CARCINOMA
     Dosage: 1000MG/M2, IV ON D1,8,15
     Route: 042
     Dates: start: 20080407
  2. GEMCITABINE [Suspect]
     Indication: PANCREATIC CARCINOMA
     Dosage: 1000MG/M2, IV ON D1,8,15
     Route: 042
     Dates: start: 20080414
  3. GEMCITABINE [Suspect]
     Indication: PANCREATIC CARCINOMA
     Dosage: 1000MG/M2, IV ON D1,8,15
     Route: 042
     Dates: start: 20080421
  4. OXALIPLATIN [Suspect]
     Dosage: 85MG/M2, IV ON D1 + 15
  5. NEXIUM [Concomitant]
  6. ATIVAN [Concomitant]
  7. OXYCODONE HCL [Concomitant]
  8. OXYCONTIN [Concomitant]
  9. COMPAZINE [Concomitant]
  10. COLACE [Concomitant]
  11. SENOKOT [Concomitant]
  12. LACTULOSE [Concomitant]
  13. TYLENOL [Concomitant]
  14. BENADRYL [Concomitant]
  15. UNIPEN [Concomitant]
  16. POTASSIUM CHLORIDE [Concomitant]
  17. ALDACTONE [Concomitant]
  18. LASIX [Concomitant]

REACTIONS (3)
  - CARDIO-RESPIRATORY ARREST [None]
  - DISEASE PROGRESSION [None]
  - UNRESPONSIVE TO STIMULI [None]
